FAERS Safety Report 9621417 (Version 2)
Quarter: 2013Q4

REPORT INFORMATION
  Report Type: Spontaneous
  Country: US (occurrence: US)
  Receive Date: 20131015
  Receipt Date: 20131105
  Transmission Date: 20140711
  Serious: Yes (Other)
  Sender: FDA-Public Use
  Company Number: US-PFIZER INC-2013294022

PATIENT
  Age: 64 Year
  Sex: Female
  Weight: 108.8 kg

DRUGS (6)
  1. PRISTIQ [Suspect]
     Indication: DEPRESSION
     Dosage: 100 MG, 1X/DAY
  2. VISTARIL [Suspect]
     Indication: ANXIETY
     Dosage: 250MG IN A DAY BY TAKING 50 MG CAPSULE 3 TIMES A DAY AND 2 CAPSULES OF 50 MG AT BEDTIME
     Route: 048
  3. BENADRYL [Suspect]
     Indication: HYPERSENSITIVITY
     Dosage: 25 MG, 2X/DAY
  4. ZANAFLEX [Suspect]
     Indication: HYPOTONIA
     Dosage: 4 MG, 3X/DAY
  5. LASIX [Suspect]
     Indication: FLUID RETENTION
     Dosage: 40 MG, 1X/DAY (EVERY MORNING)
     Route: 048
  6. MECLIZINE [Suspect]
     Indication: DIZZINESS
     Dosage: 25 MG, AS NEEDED

REACTIONS (4)
  - Diabetes mellitus [Unknown]
  - Dry throat [Not Recovered/Not Resolved]
  - Hunger [Unknown]
  - Blood cholesterol abnormal [Recovered/Resolved]
